FAERS Safety Report 16616896 (Version 1)
Quarter: 2019Q3

REPORT INFORMATION
  Report Type: Spontaneous
  Country: US (occurrence: US)
  Receive Date: 20190723
  Receipt Date: 20190723
  Transmission Date: 20191004
  Serious: No
  Sender: FDA-Public Use
  Company Number: US-FOUNDATIONCONSUMERHC-2019-US-012030

PATIENT
  Age: 16 Year
  Sex: Female
  Weight: 63.5 kg

DRUGS (3)
  1. PLAN B ONE-STEP [Suspect]
     Active Substance: LEVONORGESTREL
     Indication: POST COITAL CONTRACEPTION
     Dosage: 1.5 MG X 2 DOSES
     Route: 048
     Dates: start: 201906, end: 20190624
  2. ALBUTEROL INHALER [Concomitant]
     Active Substance: ALBUTEROL
  3. MELATONIN [Concomitant]
     Active Substance: MELATONIN
     Dosage: EVERY OTHER DAY

REACTIONS (8)
  - Dysmenorrhoea [Not Recovered/Not Resolved]
  - Vomiting [Recovered/Resolved]
  - Menstruation delayed [Recovered/Resolved]
  - Fatigue [Not Recovered/Not Resolved]
  - Vaginal haemorrhage [Recovered/Resolved]
  - Nausea [Not Recovered/Not Resolved]
  - Menorrhagia [Recovered/Resolved]
  - Diarrhoea [Recovered/Resolved]

NARRATIVE: CASE EVENT DATE: 201906
